FAERS Safety Report 4825994-1 (Version None)
Quarter: 2005Q4

REPORT INFORMATION
  Report Type: 
  Country: None (occurrence: None)
  Receive Date: 20051111
  Receipt Date: 20050817
  Transmission Date: 20060501
  Serious: Yes (Death, Other)
  Sender: FDA-Public Use
  Company Number: PR-MERCK-0508USA03276

PATIENT
  Age: 51 Year
  Sex: Male

DRUGS (1)
  1. VIOXX [Suspect]
     Route: 048
     Dates: start: 20040501, end: 20040930

REACTIONS (4)
  - CEREBROVASCULAR ACCIDENT [None]
  - DEATH [None]
  - DIZZINESS [None]
  - VERTIGO [None]
